FAERS Safety Report 22088341 (Version 1)
Quarter: 2023Q1

REPORT INFORMATION
  Report Type: Spontaneous
  Country: US (occurrence: US)
  Receive Date: 20230313
  Receipt Date: 20230313
  Transmission Date: 20230417
  Serious: No
  Sender: FDA-Public Use
  Company Number: US-JNJFOC-20230247006

PATIENT
  Age: 74 Year
  Sex: Male
  Weight: 92 kg

DRUGS (2)
  1. IMODIUM MULTI-SYMPTOM RELIEF [Suspect]
     Active Substance: DIMETHICONE\LOPERAMIDE HYDROCHLORIDE
     Indication: Diarrhoea
     Dosage: DOSAGE: UP TO 4 TABLETS A DAY
     Route: 048
     Dates: start: 2021
  2. SUTENT [Concomitant]
     Active Substance: SUNITINIB MALATE
     Indication: Gastrointestinal neoplasm
     Route: 048
     Dates: start: 202103

REACTIONS (1)
  - Drug ineffective [Unknown]
